FAERS Safety Report 21316565 (Version 1)
Quarter: 2022Q3

REPORT INFORMATION
  Report Type: Spontaneous
  Country: DE (occurrence: DE)
  Receive Date: 20220911
  Receipt Date: 20220911
  Transmission Date: 20221026
  Serious: Yes (Death, Life-Threatening, Hospitalization)
  Sender: FDA-Public Use
  Company Number: DE-NOVARTISPH-NVSC2022DE203971

PATIENT
  Sex: Male
  Weight: 67.7 kg

DRUGS (8)
  1. CARBOPLATIN [Suspect]
     Active Substance: CARBOPLATIN
     Indication: Non-small cell lung cancer
     Dosage: 344 MG
     Route: 065
     Dates: start: 20220810, end: 20220810
  2. PEMETREXED [Suspect]
     Active Substance: PEMETREXED
     Indication: Non-small cell lung cancer
     Dosage: 740 MG
     Route: 065
     Dates: start: 20220810, end: 20220810
  3. PEMBROLIZUMAB [Suspect]
     Active Substance: PEMBROLIZUMAB
     Indication: Non-small cell lung cancer
     Dosage: 200 MG
     Route: 065
     Dates: start: 20220810, end: 20220810
  4. DEXAMETHASONE [Concomitant]
     Active Substance: DEXAMETHASONE
     Indication: Product used for unknown indication
     Dosage: 8 MG, QD (4 MILLIGRAM, BID, P.O./ I.V.)
     Route: 065
     Dates: start: 20220809, end: 20220811
  5. FOLIC ACID [Concomitant]
     Active Substance: FOLIC ACID
     Indication: Product used for unknown indication
     Dosage: 400 UG
     Route: 048
     Dates: start: 20220802, end: 20220817
  6. VITAMIN B12 [Concomitant]
     Active Substance: CYANOCOBALAMIN
     Indication: Product used for unknown indication
     Dosage: 1000 UG (EVERY 9 WEEKS)
     Route: 030
     Dates: start: 20220802, end: 20220802
  7. NEULASTA [Concomitant]
     Active Substance: PEGFILGRASTIM
     Indication: Product used for unknown indication
     Dosage: 6 MG, ONCE/SINGLE (1 TOTAL)
     Route: 058
     Dates: start: 20220811, end: 20220811
  8. ONDANSETRON [Concomitant]
     Active Substance: ONDANSETRON
     Indication: Product used for unknown indication
     Dosage: 8 MG, CYCLIC
     Route: 042
     Dates: start: 20220810, end: 20220810

REACTIONS (4)
  - Pneumonitis [Fatal]
  - Neutropenia [Fatal]
  - Death [Fatal]
  - Sepsis [Fatal]

NARRATIVE: CASE EVENT DATE: 20220816
